FAERS Safety Report 8137615-3 (Version None)
Quarter: 2012Q1

REPORT INFORMATION
  Report Type: 
  Country: None (occurrence: None)
  Receive Date: 20120215
  Receipt Date: 20120202
  Transmission Date: 20120608
  Serious: Yes (Hospitalization, Other)
  Sender: FDA-Public Use
  Company Number: US-MYLANLABS-2012S1003044

PATIENT
  Sex: Male
  Weight: 63.96 kg

DRUGS (26)
  1. DIGOXIN [Suspect]
     Route: 048
     Dates: start: 20000424, end: 20100301
  2. LASIX [Concomitant]
  3. ASPIRIN [Concomitant]
  4. PULMICORT-100 [Concomitant]
  5. COZAAR [Concomitant]
  6. ZETIA [Concomitant]
  7. AUGMENTIN '125' [Concomitant]
     Dosage: FOR ONE WEEK TO COMPLETE 10 DAYS
  8. POTASSIUM [Concomitant]
  9. ARAVA [Concomitant]
  10. ALBUTEROL [Concomitant]
  11. ASTELIN [Concomitant]
     Route: 045
  12. ATACAND [Concomitant]
  13. BROVANA [Concomitant]
  14. PREDNISONE TAB [Concomitant]
     Dosage: TAPERED FROM 4 PER DAY DOWN TO 1 PER DAY OVER THE NEXT 8 DAYS
  15. ALTACE [Concomitant]
  16. PREDNISONE TAB [Concomitant]
  17. CLAFORAN [Concomitant]
  18. DARVOCET-N 100 [Concomitant]
  19. COMBIVENT [Concomitant]
  20. COREG [Concomitant]
  21. SPIRIVA [Concomitant]
  22. TOPROL-XL [Concomitant]
  23. COUMADIN [Concomitant]
     Dosage: ALTERNATING QOD WITH 7MG
  24. ACUTRIM /00103801/ [Concomitant]
  25. DOPAMINE HCL [Concomitant]
  26. ADVAIR DISKUS 100/50 [Concomitant]

REACTIONS (52)
  - PNEUMOTHORAX [None]
  - ISCHAEMIC CARDIOMYOPATHY [None]
  - PLEURAL EFFUSION [None]
  - BRONCHITIS [None]
  - CHEST X-RAY ABNORMAL [None]
  - HEART RATE IRREGULAR [None]
  - OXYGEN SATURATION DECREASED [None]
  - RIGHT ATRIAL DILATATION [None]
  - VENTRICULAR EXTRASYSTOLES [None]
  - COUGH [None]
  - FATIGUE [None]
  - HEADACHE [None]
  - BREATH SOUNDS ABNORMAL [None]
  - CELLULITIS STREPTOCOCCAL [None]
  - OEDEMA PERIPHERAL [None]
  - PNEUMONIA [None]
  - SPUTUM PURULENT [None]
  - DYSPNOEA [None]
  - ENDOCARDITIS [None]
  - CARDIAC MURMUR [None]
  - CHRONIC OBSTRUCTIVE PULMONARY DISEASE [None]
  - DIARRHOEA [None]
  - LEFT ATRIAL DILATATION [None]
  - CARDIAC FAILURE [None]
  - HYPOXIA [None]
  - WEIGHT INCREASED [None]
  - CELLULITIS [None]
  - CARDIAC FAILURE CONGESTIVE [None]
  - CONDITION AGGRAVATED [None]
  - DIASTOLIC DYSFUNCTION [None]
  - EMPHYSEMA [None]
  - HYPOTENSION [None]
  - OXYGEN SUPPLEMENTATION [None]
  - HAEMOPTYSIS [None]
  - AORTIC VALVE REPLACEMENT [None]
  - BUNDLE BRANCH BLOCK LEFT [None]
  - CHEST TUBE INSERTION [None]
  - FACIAL WASTING [None]
  - PALPITATIONS [None]
  - WHEEZING [None]
  - CORONARY ARTERY BYPASS [None]
  - MITRAL VALVE INCOMPETENCE [None]
  - VENTRICULAR TACHYCARDIA [None]
  - IMPLANTABLE DEFIBRILLATOR INSERTION [None]
  - EJECTION FRACTION DECREASED [None]
  - LUNG INFILTRATION [None]
  - PYREXIA [None]
  - ARRHYTHMIA [None]
  - TRICUSPID VALVE INCOMPETENCE [None]
  - AORTIC VALVE INCOMPETENCE [None]
  - ATAXIA [None]
  - RALES [None]
